FAERS Safety Report 13054728 (Version 1)
Quarter: 2016Q4

REPORT INFORMATION
  Report Type: Spontaneous
  Country: US (occurrence: US)
  Receive Date: 20161222
  Receipt Date: 20161222
  Transmission Date: 20170207
  Serious: Yes (Hospitalization, Other)
  Sender: FDA-Public Use
  Company Number: US-PFIZER INC-2016402992

PATIENT
  Age: 66 Year
  Sex: Male
  Weight: 110.2 kg

DRUGS (55)
  1. COUMADIN [Concomitant]
     Active Substance: WARFARIN SODIUM
     Dosage: 2 MG, DAILY (EXCEPT ON MONDAY TAKE 3 MG)
     Route: 048
  2. APRESOLINE HYDROCHLORIDE [Concomitant]
     Active Substance: HYDRALAZINE HYDROCHLORIDE
     Indication: BLOOD PRESSURE MEASUREMENT
     Dosage: 50 MG, 3X/DAY (EVERY 8 HOURS)
     Route: 048
     Dates: start: 2007
  3. NORCO [Concomitant]
     Active Substance: ACETAMINOPHEN\HYDROCODONE BITARTRATE
     Indication: PAIN
     Dosage: UNK UNK, AS NEEDED ([HYDROCODONE 10 MG]/ [ACETAMINOPHEN 325MG])(EVERY 4 HOURS )
     Route: 048
  4. LANTUS [Concomitant]
     Active Substance: INSULIN GLARGINE
     Dosage: UNK
  5. ZOFRAN [Concomitant]
     Active Substance: ONDANSETRON HYDROCHLORIDE
     Dosage: 8 MG, AS NEEDED (EVERY 8 HOURS )
     Route: 048
  6. OMACOR [Concomitant]
     Active Substance: OMEGA-3-ACID ETHYL ESTERS
     Indication: CORONARY ARTERY DISEASE
     Dosage: 4 G, DAILY (TAKE 4 CAPSULES BY MOUTH DAILY.)
     Route: 048
     Dates: start: 2003
  7. ZYLOPRIM [Concomitant]
     Active Substance: ALLOPURINOL
     Indication: GOUT
     Dosage: 100 MG, 1X/DAY
     Route: 048
     Dates: start: 2011
  8. LOMOTIL [Concomitant]
     Active Substance: ATROPINE SULFATE\DIPHENOXYLATE HYDROCHLORIDE
     Indication: DIARRHOEA
     Dosage: UNK UNK, AS NEEDED ([ATROPINE SULFATE 0.025  MG]/ [DIPHENOXYLATE HYDROCHLORIDE: 2.5MG](4TIMESDAILY)
     Route: 048
  9. LIPITOR [Concomitant]
     Active Substance: ATORVASTATIN CALCIUM
     Indication: BLOOD CHOLESTEROL INCREASED
     Dosage: 20 MG, 1X/DAY (LATE)
     Route: 048
     Dates: start: 2001
  10. COMPAZINE [Concomitant]
     Active Substance: PROCHLORPERAZINE MALEATE
     Indication: VOMITING
  11. ZYRTEC [Concomitant]
     Active Substance: CETIRIZINE HYDROCHLORIDE
     Dosage: 10 MG, DAILY
     Route: 048
  12. NEURONTIN [Concomitant]
     Active Substance: GABAPENTIN
     Indication: NEURALGIA
     Dosage: 300 MG, 3X/DAY
     Route: 048
     Dates: start: 2014
  13. BACTROBAN [Concomitant]
     Active Substance: MUPIROCIN\MUPIROCIN CALCIUM
     Dosage: 22 G, 3X/DAY
     Route: 061
  14. CALCITRIOL. [Concomitant]
     Active Substance: CALCITRIOL
     Dosage: 5 UG, 1X/DAY
     Dates: start: 2012
  15. SUTENT [Suspect]
     Active Substance: SUNITINIB MALATE
     Indication: METASTATIC RENAL CELL CARCINOMA
     Dosage: 50 MG, CYCLIC (DAILY FOR 4 WEEKS, 2 WEEKS OFF REPEAT CYCLE)
     Route: 048
     Dates: start: 201404
  16. WARFARIN [Suspect]
     Active Substance: WARFARIN
     Indication: ATRIAL FIBRILLATION
     Dosage: 2 MG, UNK (AS DIRECTED)
  17. COUMADIN [Concomitant]
     Active Substance: WARFARIN SODIUM
     Dosage: 2 MG, DAILY (EXCEPT ON MONDAY TAKE 3 MG)
     Route: 048
  18. COUMADIN [Concomitant]
     Active Substance: WARFARIN SODIUM
     Dosage: 5 MG, DAILY (EXCEPT 2.5 MG ON SUN)
  19. ECOTRIN [Concomitant]
     Active Substance: ASPIRIN
     Dosage: 81 MG, DAILY
     Route: 048
  20. AMLODIPINE BESILATE [Concomitant]
     Active Substance: AMLODIPINE BESYLATE
     Indication: BLOOD PRESSURE MEASUREMENT
     Dosage: 5 MG, 1X/DAY
     Dates: start: 2011
  21. METOPROLOL. [Concomitant]
     Active Substance: METOPROLOL
     Indication: CARDIAC DISORDER
     Dosage: 2.5 DF, DAILY (1.5 TABLET IN THE MORNING, 1 TABLET IN THE EVENING)
     Dates: start: 2008
  22. GABAPENTIN. [Concomitant]
     Active Substance: GABAPENTIN
     Indication: CRANIAL NERVE DISORDER
     Dosage: 300 MG, UNK
     Dates: start: 2014
  23. NORVASC [Concomitant]
     Active Substance: AMLODIPINE BESYLATE
     Indication: BLOOD PRESSURE MEASUREMENT
     Dosage: 5 MG, DAILY
     Route: 048
     Dates: start: 2011
  24. FOLBEE [Concomitant]
     Active Substance: CYANOCOBALAMIN\FOLIC ACID\PYRIDOXINE HYDROCHLORIDE
     Dosage: UNK UNK, DAILY [CYANOCOBALAMIN2.5MG], [FOLIC ACID 25MG] [PYRIDOXINE HYDROCHLORIDE1MG]
     Route: 048
  25. NITROSTAT [Concomitant]
     Active Substance: NITROGLYCERIN
     Indication: CHEST PAIN
     Dosage: 0.4 MG, AS NEEDED (EVERY 5 MINUTES ) (MAY USE UP TO 3 DOSAGE AS NEEDED FOR EACH EPISODE)
     Route: 060
  26. FUROSEMIDE. [Concomitant]
     Active Substance: FUROSEMIDE
     Indication: SWELLING
     Dosage: 40 MG, 1X/DAY
     Dates: start: 2012
  27. ALLOPURINOL. [Concomitant]
     Active Substance: ALLOPURINOL
     Indication: GOUT
     Dosage: 100 MG, DAILY
     Dates: start: 2011
  28. OMEGA 3 [Concomitant]
     Active Substance: OMEGA-3 FATTY ACIDS
     Indication: CORONARY ARTERY DISEASE
     Dosage: 4000 MG, DAILY
     Dates: start: 2003
  29. OMEPRAZOLE. [Concomitant]
     Active Substance: OMEPRAZOLE
     Indication: GASTROOESOPHAGEAL REFLUX DISEASE
     Dosage: 20 MG, DAILY
     Route: 048
     Dates: start: 2002
  30. CLEOCIN [Concomitant]
     Active Substance: CLINDAMYCIN PHOSPHATE
     Dosage: 300 MG, 3X/DAY
     Route: 048
  31. LASIX [Concomitant]
     Active Substance: FUROSEMIDE
     Indication: SWELLING
     Dosage: 40 MG, DAILY
     Route: 048
     Dates: start: 2012
  32. COMPAZINE [Concomitant]
     Active Substance: PROCHLORPERAZINE MALEATE
     Indication: NAUSEA
     Dosage: 10 MG, AS NEEDED (EVERY 6 HOURS)
     Route: 048
  33. LEVOTHYROXINE. [Concomitant]
     Active Substance: LEVOTHYROXINE
     Indication: BLOOD THYROID STIMULATING HORMONE NORMAL
     Dosage: 75 UG, 1X/DAY (ONE TABLET IN THE MORNING)
     Route: 048
     Dates: start: 2013
  34. OSCAL D [Concomitant]
     Active Substance: CALCIUM CARBONATE\CHOLECALCIFEROL
     Dosage: 500 MG, 2X/DAY (WITH MEALS)
     Route: 048
  35. NOVOLOG [Concomitant]
     Active Substance: INSULIN ASPART
     Dosage: UNK
  36. GLIMEPIRIDE. [Concomitant]
     Active Substance: GLIMEPIRIDE
     Dosage: 2 DF, UNK
  37. WARFARIN [Suspect]
     Active Substance: WARFARIN
     Dosage: UNK (2 MG MWF AND 3 MG TTSS)
  38. PERCOCET [Concomitant]
     Active Substance: ACETAMINOPHEN\OXYCODONE HYDROCHLORIDE
     Indication: PAIN
     Dosage: UNK UNK, AS NEEDED [OXYCODONE 5 MG]/ [ACETAMINOPHEN:325 MG] (EVERY 4 HOURS AS NEEDED)
     Route: 048
  39. LOVAZA [Concomitant]
     Active Substance: OMEGA-3-ACID ETHYL ESTERS
     Dosage: 4 G, DAILY (4 CAPSULES BY MOUTH DAILY.)
     Route: 048
     Dates: start: 2003
  40. ROCALTROL [Concomitant]
     Active Substance: CALCITRIOL
     Dosage: 5 UG, 1X/DAY (1 PILL 7 TIMES A WEEK )
     Dates: start: 201612
  41. MICRO-K [Concomitant]
     Active Substance: POTASSIUM CHLORIDE
     Indication: HYPOKALAEMIC SYNDROME
     Dosage: 10 MEQ, DAILY
     Route: 048
     Dates: start: 2014
  42. PRILOSEC [Concomitant]
     Active Substance: OMEPRAZOLE MAGNESIUM
     Indication: GASTROOESOPHAGEAL REFLUX DISEASE
     Dosage: 20 MG, DAILY
     Route: 048
     Dates: start: 2002
  43. VENTOLIN HFA [Concomitant]
     Active Substance: ALBUTEROL SULFATE
     Indication: DYSPNOEA
     Dosage: 90 UG, AS NEEDED (2 PUFFS BY INHALATION EVERY 6 HOURS)
  44. COENZYME Q10 [Concomitant]
     Active Substance: UBIDECARENONE
     Dosage: 100 MG, DAILY
     Route: 048
  45. HYDRALAZINE [Concomitant]
     Active Substance: HYDRALAZINE HYDROCHLORIDE
     Indication: BLOOD PRESSURE MEASUREMENT
     Dosage: 50 MG, 3X/DAY
     Dates: start: 2007
  46. CALCITRIOL. [Concomitant]
     Active Substance: CALCITRIOL
     Dosage: 5 UG, UNK (1 PILL 5 DAYS A WEEK INCREASED DOSE TAKING 1 PILL 7 TIMES A WEEK)
     Dates: start: 201612
  47. SUTENT [Suspect]
     Active Substance: SUNITINIB MALATE
     Indication: RENAL CELL CARCINOMA
     Dosage: 50 MG, CYCLIC (DAILY FOR 4 WEEKS, 2 WEEKS OFF REPEAT CYCLE)
     Route: 048
     Dates: start: 201604, end: 20161114
  48. ROCALTROL [Concomitant]
     Active Substance: CALCITRIOL
     Dosage: 0.5 UG, DAILY (DAILY MONDAY THROUGH FRIDAY)
     Route: 048
  49. TOPROL XL [Concomitant]
     Active Substance: METOPROLOL SUCCINATE
     Indication: CARDIAC DISORDER
     Dosage: 100 MG, DAILY (TAKE 1 + 1/2 TABLET IN MORNING AND 1 TABLET EVERY EVENING)
     Route: 048
     Dates: start: 2008
  50. NEURONTIN [Concomitant]
     Active Substance: GABAPENTIN
     Indication: NEURALGIA
  51. POTASSIUM [Concomitant]
     Active Substance: POTASSIUM
     Indication: BLOOD POTASSIUM DECREASED
     Dosage: 10 MEQ, DAILY
     Route: 048
     Dates: start: 2014
  52. SUTENT [Suspect]
     Active Substance: SUNITINIB MALATE
     Dosage: 50 UNK, UNK (4 WEEKS ON AND ONE WEEK OFF)
     Route: 048
  53. CIPRO [Concomitant]
     Active Substance: CIPROFLOXACIN HYDROCHLORIDE
     Dosage: 250 MG, 2X/DAY
     Route: 048
  54. ROCALTROL [Concomitant]
     Active Substance: CALCITRIOL
     Dosage: 5 UG, 1X/DAY (1 PILL 5 DAYS A WEEK)
     Dates: start: 2012
  55. ATORVASTATIN [Concomitant]
     Active Substance: ATORVASTATIN
     Indication: BLOOD CHOLESTEROL INCREASED
     Dosage: 20 MG, 1X/DAY
     Dates: start: 2001

REACTIONS (5)
  - Drug prescribing error [Unknown]
  - Haematoma [Unknown]
  - Neoplasm progression [Unknown]
  - International normalised ratio increased [Unknown]
  - Postoperative wound infection [Unknown]

NARRATIVE: CASE EVENT DATE: 201602
